FAERS Safety Report 5301776-1 (Version None)
Quarter: 2007Q2

REPORT INFORMATION
  Report Type: 
  Country: None (occurrence: None)
  Receive Date: 20070419
  Receipt Date: 20070410
  Transmission Date: 20071010
  Serious: Yes (Other)
  Sender: FDA-Public Use
  Company Number: PHBS2007DE06367

PATIENT
  Age: 81 Year
  Sex: Male

DRUGS (1)
  1. ZOLEDRONIC ACID [Suspect]
     Indication: MULTIPLE MYELOMA

REACTIONS (3)
  - OSTEONECROSIS [None]
  - SEQUESTRECTOMY [None]
  - WOUND DEBRIDEMENT [None]
